FAERS Safety Report 6637441-8 (Version None)
Quarter: 2010Q1

REPORT INFORMATION
  Report Type: 
  Country: None (occurrence: None)
  Receive Date: 20100316
  Receipt Date: 20100308
  Transmission Date: 20100710
  Serious: Yes (Death)
  Sender: FDA-Public Use
  Company Number: FR-GENENTECH-299126

PATIENT
  Age: 86 Year
  Sex: Male

DRUGS (2)
  1. RITUXIMAB [Suspect]
     Indication: HAIRY CELL LEUKAEMIA
     Dosage: 375 MG/M2, 1/WEEK
     Route: 042
  2. PENTOSTATIN [Suspect]
     Indication: HAIRY CELL LEUKAEMIA
     Dosage: 4 MG/M2, Q2W
     Route: 042

REACTIONS (5)
  - DEATH [None]
  - HYPOXIA [None]
  - PNEUMONIA [None]
  - SEPSIS [None]
  - TREATMENT FAILURE [None]
